FAERS Safety Report 5646691-9 (Version None)
Quarter: 2008Q1

REPORT INFORMATION
  Report Type: 
  Country: None (occurrence: None)
  Receive Date: 20080131
  Receipt Date: 20071204
  Transmission Date: 20080703
  Serious: Yes (Hospitalization)
  Sender: FDA-Public Use
  Company Number: 163-21880-07110603

PATIENT
  Age: 66 Year
  Sex: Female

DRUGS (3)
  1. REVLIMID [Suspect]
     Dosage: 25 MG, QD X21 DAYS, ORAL
     Route: 048
     Dates: start: 20071026
  2. DEXAMETHASONE (DEXMETHASONE) [Concomitant]
  3. COUMADIN [Concomitant]

REACTIONS (2)
  - CARDIAC FAILURE CONGESTIVE [None]
  - RASH GENERALISED [None]
